FAERS Safety Report 25592178 (Version 2)
Quarter: 2025Q3

REPORT INFORMATION
  Report Type: Spontaneous
  Country: US (occurrence: US)
  Receive Date: 20250722
  Receipt Date: 20250724
  Transmission Date: 20251020
  Serious: Yes (Other)
  Sender: Kenvue
  Company Number: US-KENVUE-20250706424

PATIENT
  Age: 27 Year
  Sex: Female

DRUGS (2)
  1. UNAPPROVED DRUG COSMETIC PRODUCTS [Suspect]
     Active Substance: UNAPPROVED DRUG COSMETIC PRODUCTS
     Indication: Acne
     Dosage: JUST LIKE THE INSTRUCTED AMOUNT, ONCE IN A MONTH
     Route: 061
     Dates: start: 2024
  2. UNAPPROVED DRUG COSMETIC PRODUCTS [Suspect]
     Active Substance: UNAPPROVED DRUG COSMETIC PRODUCTS
     Indication: Accidental exposure to product
     Route: 047
     Dates: start: 20250711

REACTIONS (3)
  - Blindness transient [Not Recovered/Not Resolved]
  - Accidental exposure to product [Unknown]
  - Eye pain [Not Recovered/Not Resolved]

NARRATIVE: CASE EVENT DATE: 20250711
